FAERS Safety Report 18947404 (Version 1)
Quarter: 2021Q1

REPORT INFORMATION
  Report Type: Spontaneous
  Country: GB (occurrence: GB)
  Receive Date: 20210226
  Receipt Date: 20210226
  Transmission Date: 20210420
  Serious: Yes (Other)
  Sender: FDA-Public Use
  Company Number: GB-MYLANLABS-2021M1011658

PATIENT
  Sex: Female

DRUGS (1)
  1. AMLODIPINE [Suspect]
     Active Substance: AMLODIPINE BESYLATE
     Indication: PRODUCT USED FOR UNKNOWN INDICATION
     Dosage: STRENGTH 5 MG

REACTIONS (6)
  - Fatigue [Unknown]
  - Dry mouth [Unknown]
  - Dizziness [Unknown]
  - Loss of consciousness [Unknown]
  - Somnolence [Unknown]
  - Balance disorder [Unknown]
